FAERS Safety Report 9050403 (Version 2)
Quarter: 2013Q1

REPORT INFORMATION
  Report Type: Spontaneous
  Country: US (occurrence: US)
  Receive Date: 20130205
  Receipt Date: 20130226
  Transmission Date: 20140127
  Serious: No
  Sender: FDA-Public Use
  Company Number: US-PFIZER INC-2013041226

PATIENT
  Age: 51 Year
  Sex: Female

DRUGS (2)
  1. NEOMYCIN SULFATE [Suspect]
     Dosage: UNK
  2. METHERGINE [Suspect]
     Dosage: UNK

REACTIONS (1)
  - Drug hypersensitivity [Unknown]
